FAERS Safety Report 6734747-9 (Version None)
Quarter: 2010Q2

REPORT INFORMATION
  Report Type: 
  Country: None (occurrence: None)
  Receive Date: 20100519
  Receipt Date: 20100519
  Transmission Date: 20101027
  Serious: No
  Sender: FDA-Public Use
  Company Number: None

PATIENT
  Age: 80 Year
  Sex: Female
  Weight: 72.5755 kg

DRUGS (1)
  1. LIPITOR [Suspect]
     Dosage: 10 MG 1X/DA 20 MG 1X/DA

REACTIONS (2)
  - GAIT DISTURBANCE [None]
  - MYALGIA [None]
